FAERS Safety Report 14164805 (Version 1)
Quarter: 2017Q4

REPORT INFORMATION
  Report Type: Spontaneous
  Country: US (occurrence: US)
  Receive Date: 20171107
  Receipt Date: 20171107
  Transmission Date: 20180321
  Serious: No
  Sender: FDA-Public Use
  Company Number: US-LUPIN PHARMACEUTICALS INC.-E2B_00006933

PATIENT
  Sex: Female
  Weight: 56.7 kg

DRUGS (1)
  1. LISINOPRIL TABLETS USP, 40MG [Suspect]
     Active Substance: LISINOPRIL
     Indication: HYPERTENSION
     Dosage: 40 MG,QD,
     Route: 048
     Dates: end: 20160810

REACTIONS (3)
  - Swollen tongue [Not Recovered/Not Resolved]
  - Swelling face [Not Recovered/Not Resolved]
  - Lip swelling [Not Recovered/Not Resolved]
